FAERS Safety Report 7597184-3 (Version None)
Quarter: 2011Q3

REPORT INFORMATION
  Report Type: 
  Country: None (occurrence: None)
  Receive Date: 20110708
  Receipt Date: 20100726
  Transmission Date: 20111222
  Serious: No
  Sender: FDA-Public Use
  Company Number: US-GLAXOSMITHKLINE-A0872348A

PATIENT
  Age: 87 Year
  Sex: Male

DRUGS (5)
  1. CRESTOR [Concomitant]
  2. COUMADIN [Concomitant]
  3. FLOVENT [Suspect]
     Indication: LUNG DISORDER
     Dosage: 2PUFF TWICE PER DAY
     Route: 055
     Dates: start: 20100723, end: 20100725
  4. ASPIRIN [Concomitant]
  5. VITAMIN TAB [Concomitant]
     Indication: EYE DISORDER

REACTIONS (2)
  - RESPIRATORY TRACT CONGESTION [None]
  - COUGH [None]
